FAERS Safety Report 11865156 (Version 1)
Quarter: 2015Q4

REPORT INFORMATION
  Report Type: Report from Study
  Country: DE (occurrence: DE)
  Receive Date: 20151223
  Receipt Date: 20151223
  Transmission Date: 20160305
  Serious: Yes (Hospitalization, Other)
  Sender: FDA-Public Use
  Company Number: PHHY2013DE021048

PATIENT
  Sex: Female
  Weight: 90 kg

DRUGS (2)
  1. EXTAVIA [Suspect]
     Active Substance: INTERFERON BETA-1B
     Indication: RELAPSING-REMITTING MULTIPLE SCLEROSIS
     Dosage: 250 UG/ML, ONCE EVERY OTHER DAY
     Route: 058
     Dates: start: 201202
  2. EXTAVIA [Suspect]
     Active Substance: INTERFERON BETA-1B
     Dosage: 250 UG/ML, UNK
     Route: 058
     Dates: start: 20120321

REACTIONS (6)
  - Multiple sclerosis relapse [Recovered/Resolved]
  - Hemianaesthesia [Recovered/Resolved]
  - Demyelination [Recovered/Resolved]
  - Malaise [Unknown]
  - Multiple sclerosis relapse [Recovered/Resolved]
  - Palpitations [Unknown]

NARRATIVE: CASE EVENT DATE: 20120907
